FAERS Safety Report 22891325 (Version 2)
Quarter: 2024Q4

REPORT INFORMATION
  Report Type: Report from Study
  Country: BR (occurrence: BR)
  Receive Date: 20230901
  Receipt Date: 20241022
  Transmission Date: 20250115
  Serious: Yes (Death, Life-Threatening, Hospitalization, Other)
  Sender: SANDOZ
  Company Number: BR-002147023-NVSC2022BR072200

PATIENT
  Age: 48 Year
  Sex: Male
  Weight: 77 kg

DRUGS (13)
  1. ENALAPRIL [Suspect]
     Active Substance: ENALAPRIL
     Indication: Chagas^ cardiomyopathy
     Dosage: 10 MG, QD
     Route: 048
     Dates: start: 20211210, end: 20230421
  2. ALDACTONE [Concomitant]
     Active Substance: SPIRONOLACTONE
     Dosage: 50 MG
     Route: 065
     Dates: start: 20220302
  3. ALDACTONE [Concomitant]
     Active Substance: SPIRONOLACTONE
     Indication: Cardiac failure
     Dosage: 50 UNK
     Route: 065
     Dates: start: 20211210, end: 20220421
  4. AMIODARONE HYDROCHLORIDE [Concomitant]
     Active Substance: AMIODARONE HYDROCHLORIDE
     Indication: Cardiac failure
     Dosage: 100 MG
     Route: 065
     Dates: start: 201701
  5. COREG [Concomitant]
     Active Substance: CARVEDILOL
     Indication: Cardiac failure
     Dosage: 6.25 UNK
     Route: 065
     Dates: start: 20220111, end: 20220302
  6. JARDIANCE [Concomitant]
     Active Substance: EMPAGLIFLOZIN
     Dosage: 12.5 MG
     Route: 065
     Dates: start: 201701
  7. JARDIANCE [Concomitant]
     Active Substance: EMPAGLIFLOZIN
     Indication: Cardiac failure
     Dosage: 160 MG
     Route: 065
     Dates: start: 201701
  8. LASIX [Concomitant]
     Active Substance: FUROSEMIDE
     Indication: Cardiac failure
     Dosage: 80 MG, QD
     Route: 065
     Dates: start: 20220210, end: 20220421
  9. LASIX [Concomitant]
     Active Substance: FUROSEMIDE
     Dosage: UNK
     Route: 065
     Dates: start: 20220302, end: 20220421
  10. LASIX [Concomitant]
     Active Substance: FUROSEMIDE
     Dosage: UNK
     Route: 065
     Dates: start: 20220302
  11. INDAPAMIDE [Concomitant]
     Active Substance: INDAPAMIDE
     Indication: Cardiac failure
     Dosage: 1.5 MG
     Route: 065
     Dates: start: 20220302
  12. PURAN [Concomitant]
     Active Substance: LEVOTHYROXINE SODIUM
     Indication: Hypothyroidism
     Dosage: 25 UG
     Route: 065
     Dates: start: 201701
  13. Vaslip [Concomitant]
     Indication: Hypercholesterolaemia
     Dosage: 20 MG
     Route: 065
     Dates: start: 201701

REACTIONS (5)
  - Cardiac failure [Fatal]
  - Cardiogenic shock [Fatal]
  - Acute kidney injury [Fatal]
  - Hypotension [Fatal]
  - Acute hepatic failure [Fatal]

NARRATIVE: CASE EVENT DATE: 20220224
